FAERS Safety Report 9190655 (Version 1)
Quarter: 2013Q1

REPORT INFORMATION
  Report Type: Spontaneous
  Country: US (occurrence: None)
  Receive Date: 20120703
  Receipt Date: 20120703
  Transmission Date: 20140127
  Serious: Yes (Other)
  Sender: FDA-Public Use
  Company Number: PHEH2012US007730

PATIENT
  Age: 31 Year
  Sex: Female

DRUGS (1)
  1. GILENYA (FTY)CAPSULE [Suspect]
     Dates: start: 201106

REACTIONS (8)
  - Balance disorder [None]
  - Hypoaesthesia [None]
  - Fatigue [None]
  - Dyspnoea [None]
  - Multiple sclerosis [None]
  - Sinusitis [None]
  - Lung infection [None]
  - Fall [None]
